FAERS Safety Report 12887684 (Version 1)
Quarter: 2016Q4

REPORT INFORMATION
  Report Type: Report from Study
  Country: KR (occurrence: KR)
  Receive Date: 20161026
  Receipt Date: 20161026
  Transmission Date: 20170207
  Serious: Yes (Hospitalization)
  Sender: FDA-Public Use
  Company Number: US-ASTRAZENECA-2015SE76171

PATIENT
  Age: 54 Year
  Sex: Male
  Weight: 67 kg

DRUGS (8)
  1. ROFLUMILAST [Suspect]
     Active Substance: ROFLUMILAST
     Indication: CHRONIC OBSTRUCTIVE PULMONARY DISEASE
     Route: 048
     Dates: start: 20150603, end: 20150727
  2. STOGAR [Concomitant]
     Active Substance: LAFUTIDINE
     Indication: NAUSEA
     Route: 048
     Dates: start: 20150228
  3. SYMBICORT [Concomitant]
     Active Substance: BUDESONIDE\FORMOTEROL FUMARATE DIHYDRATE
     Indication: CHRONIC OBSTRUCTIVE PULMONARY DISEASE
     Route: 050
     Dates: start: 20150302
  4. ERDOS [Concomitant]
     Indication: PRODUCTIVE COUGH
     Route: 048
     Dates: start: 20150228
  5. SPIRIVA [Concomitant]
     Active Substance: TIOTROPIUM BROMIDE MONOHYDRATE
     Indication: CHRONIC OBSTRUCTIVE PULMONARY DISEASE
     Route: 050
     Dates: start: 20150302
  6. STOGAR [Concomitant]
     Active Substance: LAFUTIDINE
     Indication: VOMITING
     Route: 048
     Dates: start: 20150228
  7. SURFOLASE [Concomitant]
     Route: 048
     Dates: start: 20150311
  8. STOGAR [Concomitant]
     Active Substance: LAFUTIDINE
     Indication: DYSPEPSIA
     Route: 048
     Dates: start: 20150228

REACTIONS (1)
  - Pneumothorax [Recovered/Resolved]

NARRATIVE: CASE EVENT DATE: 20150727
